FAERS Safety Report 15266461 (Version 1)
Quarter: 2018Q3

REPORT INFORMATION
  Report Type: Spontaneous
  Country: US (occurrence: US)
  Receive Date: 20180724
  Receipt Date: 20180724
  Transmission Date: 20181010
  Serious: Yes (Other)
  Sender: FDA-Public Use
  Company Number: None

PATIENT
  Age: 58 Year
  Sex: Female
  Weight: 71.55 kg

DRUGS (15)
  1. OMEPRAZOLE 40MG CAPSULE [Concomitant]
     Dates: start: 20170110
  2. BREO ELLIPTA 200?25MCG INHALER [Concomitant]
     Dates: start: 20180131
  3. ATENOLOL 100MG TABLET [Concomitant]
     Dates: start: 20170110
  4. AMITRIPTYLINE 50MG TABLET [Concomitant]
     Dates: start: 20180427
  5. DOCUSATE SODIUM 100MG CAPSULE [Concomitant]
     Dates: start: 20170412
  6. DILTIAZEM. [Suspect]
     Active Substance: DILTIAZEM
     Indication: BLOOD PRESSURE MEASUREMENT
     Route: 048
     Dates: start: 20180111, end: 20180724
  7. SODIUM CHLORIDE 1 GRAM TABLET [Concomitant]
     Dates: start: 20170308
  8. ALBUTEROL 1.25/3ML NEBULIZER SOLUTION [Concomitant]
     Dates: start: 20180414
  9. TEMAZEPAM 15MG CAPSULE [Concomitant]
     Dates: start: 20180705
  10. ZOLPIDEM 5MG TABLET [Concomitant]
     Dates: start: 20180613
  11. SIMVASTATIN 10MG TABLET [Concomitant]
     Dates: start: 20170509
  12. DOXAZOSIN 1MG TABLET [Concomitant]
     Dates: start: 20180705
  13. VENTOLIN HFA INHALER [Concomitant]
     Dates: start: 20161227
  14. AMLODIPINE [Concomitant]
     Active Substance: AMLODIPINE BESYLATE
     Dates: start: 20180514
  15. TUDORZA PRESSAIR 400MCG INHALER [Concomitant]
     Dates: start: 20180131

REACTIONS (1)
  - Alopecia [None]

NARRATIVE: CASE EVENT DATE: 20180724
